FAERS Safety Report 7131237-9 (Version None)
Quarter: 2010Q4

REPORT INFORMATION
  Report Type: 
  Country: None (occurrence: None)
  Receive Date: 20101201
  Receipt Date: 20101124
  Transmission Date: 20110411
  Serious: Yes (Hospitalization)
  Sender: FDA-Public Use
  Company Number: US-BRISTOL-MYERS SQUIBB COMPANY-15399579

PATIENT
  Age: 49 Year
  Sex: Female

DRUGS (13)
  1. CARBOPLATIN [Suspect]
     Indication: BREAST CANCER
     Dosage: LAST DOSE:02AUG2010 (70D)
     Dates: start: 20100524
  2. CYTOXAN [Suspect]
     Indication: BREAST CANCER
     Dates: start: 20101108
  3. ABRAXANE [Suspect]
     Indication: BREAST CANCER
     Dosage: LAST DOSE:09AUG2010 (91D)
     Dates: start: 20100510
  4. AVASTIN [Suspect]
     Indication: BREAST CANCER
     Dosage: LAST DOSE:12JUL2010 (91D)
     Dates: start: 20100524
  5. ADRIAMYCIN PFS [Suspect]
     Indication: BREAST CANCER
     Dates: start: 20101108
  6. NEULASTA [Suspect]
     Indication: BREAST CANCER
     Dates: start: 20101110
  7. NEULASTA [Suspect]
     Indication: PROPHYLAXIS
     Dates: start: 20101110
  8. AZITHROMYCIN [Concomitant]
  9. HYDROCHLOROTHIAZIDE [Concomitant]
  10. POTASSIUM CHLORIDE [Concomitant]
  11. HYDROCODONE BITARTRATE AND ACETAMINOPHEN [Concomitant]
  12. LORAZEPAM [Concomitant]
  13. DIPHENHYDRAMINE HCL [Concomitant]

REACTIONS (4)
  - HYPERSENSITIVITY [None]
  - NEUTROPENIA [None]
  - ODYNOPHAGIA [None]
  - ORAL CANDIDIASIS [None]
